FAERS Safety Report 18472582 (Version 10)
Quarter: 2024Q2

REPORT INFORMATION
  Report Type: Report from Study
  Country: US (occurrence: US)
  Receive Date: 20201106
  Receipt Date: 20240520
  Transmission Date: 20240716
  Serious: Yes (Hospitalization, Other)
  Sender: FDA-Public Use
  Company Number: US-GLAXOSMITHKLINE-US2020AMR203422

PATIENT
  Sex: Female

DRUGS (10)
  1. NIRAPARIB [Suspect]
     Active Substance: NIRAPARIB
     Indication: Malignant connective tissue neoplasm
     Dosage: 300 MG, QD
     Dates: start: 20201008, end: 20201024
  2. NIRAPARIB [Suspect]
     Active Substance: NIRAPARIB
     Indication: Soft tissue sarcoma
     Dosage: 200 MG, QD
     Dates: start: 20201104, end: 20201114
  3. NIRAPARIB [Suspect]
     Active Substance: NIRAPARIB
     Indication: Leiomyosarcoma
     Dosage: 300 MG, QD
     Dates: start: 20201208
  4. NIRAPARIB [Suspect]
     Active Substance: NIRAPARIB
     Dosage: 300 MG, QD
  5. NIRAPARIB [Suspect]
     Active Substance: NIRAPARIB
     Dosage: 200 MG, QD
     Dates: start: 20210205
  6. NIRAPARIB [Suspect]
     Active Substance: NIRAPARIB
     Dosage: 100 MG, QD
     Dates: start: 20210317, end: 20210415
  7. NIRAPARIB [Suspect]
     Active Substance: NIRAPARIB
     Dosage: 100 MG, QD
     Route: 048
     Dates: start: 20210503
  8. NIRAPARIB [Suspect]
     Active Substance: NIRAPARIB
     Indication: Connective tissue neoplasm
     Dosage: 100 MG, QD
     Route: 048
  9. NIRAPARIB [Suspect]
     Active Substance: NIRAPARIB
     Indication: Soft tissue neoplasm
  10. METAMUCIL [Concomitant]
     Active Substance: PLANTAGO SEED
     Indication: Constipation
     Dosage: UNK UNK, QD

REACTIONS (25)
  - Femoral neck fracture [Unknown]
  - Hip fracture [Unknown]
  - Neoplasm malignant [Recovering/Resolving]
  - Surgery [Unknown]
  - Nausea [Not Recovered/Not Resolved]
  - Pain [Unknown]
  - Fatigue [Not Recovered/Not Resolved]
  - Headache [Unknown]
  - Wound [Unknown]
  - Fall [Unknown]
  - Alopecia [Unknown]
  - Gait inability [Recovering/Resolving]
  - Joint swelling [Unknown]
  - Peripheral swelling [Unknown]
  - COVID-19 [Recovered/Resolved]
  - Brain fog [Unknown]
  - Bowel movement irregularity [Unknown]
  - Weight increased [Unknown]
  - Decreased appetite [Recovering/Resolving]
  - Blood pressure increased [Recovered/Resolved]
  - Thyroid hormones increased [Unknown]
  - Product use in unapproved indication [Unknown]
  - Product dose omission issue [Unknown]
  - Inappropriate schedule of product administration [Unknown]
  - Off label use [Unknown]
